FAERS Safety Report 11995341 (Version 2)
Quarter: 2016Q2

REPORT INFORMATION
  Report Type: Spontaneous
  Country: US (occurrence: US)
  Receive Date: 20160203
  Receipt Date: 20160407
  Transmission Date: 20160815
  Serious: Yes (Death, Hospitalization, Other)
  Sender: FDA-Public Use
  Company Number: US-TEVA-630141USA

PATIENT
  Sex: Male
  Weight: 90.8 kg

DRUGS (9)
  1. CEFEPIME [Concomitant]
     Active Substance: CEFEPIME HYDROCHLORIDE
  2. MOXIFLOXACIN. [Suspect]
     Active Substance: MOXIFLOXACIN
     Indication: PROPHYLAXIS
     Dosage: 400 MILLIGRAM DAILY;
     Route: 065
  3. GENERIC NEURONTIN [Concomitant]
     Indication: NEURALGIA
     Dosage: 2400 MILLIGRAM DAILY;
  4. GENERIC DILAUDID [Concomitant]
     Dosage: 12 MILLIGRAM DAILY;
  5. LASIX [Concomitant]
     Active Substance: FUROSEMIDE
  6. VANCOMYCIN [Concomitant]
     Active Substance: VANCOMYCIN
  7. ACICLOVIR [Suspect]
     Active Substance: ACYCLOVIR
     Indication: PROPHYLAXIS
     Dosage: 1000 MILLIGRAM DAILY;
     Route: 065
  8. METHADONE HYDROCHLORIDE. [Concomitant]
     Active Substance: METHADONE HYDROCHLORIDE
     Indication: PAIN
     Dosage: 20 MILLIGRAM DAILY;
  9. VFEND [Suspect]
     Active Substance: VORICONAZOLE
     Indication: PROPHYLAXIS
     Dosage: 400 MILLIGRAM DAILY;
     Route: 048

REACTIONS (3)
  - Pneumonia [Fatal]
  - Adverse event [Unknown]
  - Hypoxia [Fatal]
